FAERS Safety Report 6634170-1 (Version None)
Quarter: 2010Q1

REPORT INFORMATION
  Report Type: 
  Country: None (occurrence: None)
  Receive Date: 20100315
  Receipt Date: 20100304
  Transmission Date: 20100710
  Serious: Yes (Hospitalization)
  Sender: FDA-Public Use
  Company Number: US-ASTRAZENECA-2010SE09403

PATIENT
  Age: 28327 Day
  Sex: Female
  Weight: 63.5 kg

DRUGS (8)
  1. ARIMIDEX [Suspect]
     Route: 048
     Dates: start: 20081101
  2. METOPROLOL TARTRATE [Concomitant]
  3. PLAVIX [Concomitant]
  4. SIMVASTATIN [Concomitant]
  5. FOLIC ACID [Concomitant]
  6. VIT D [Concomitant]
  7. MAGNESIUM [Concomitant]
  8. BABY ASPIRIN [Concomitant]

REACTIONS (4)
  - ALOPECIA [None]
  - FALL [None]
  - FRACTURE [None]
  - LIMB CRUSHING INJURY [None]
